FAERS Safety Report 21147366 (Version 2)
Quarter: 2023Q1

REPORT INFORMATION
  Report Type: Report from Study
  Country: CL (occurrence: CL)
  Receive Date: 20220729
  Receipt Date: 20230113
  Transmission Date: 20230418
  Serious: Yes (Hospitalization)
  Sender: FDA-Public Use
  Company Number: CL-JNJFOC-20220608682

PATIENT
  Age: 76 Year
  Sex: Female

DRUGS (1)
  1. SIMPONI [Suspect]
     Active Substance: GOLIMUMAB
     Indication: Psoriatic arthropathy
     Route: 058
     Dates: start: 20210616

REACTIONS (3)
  - Infection [Unknown]
  - Hospitalisation [Unknown]
  - Surgery [Unknown]

NARRATIVE: CASE EVENT DATE: 20220101
